FAERS Safety Report 22209583 (Version 1)
Quarter: 2023Q2

REPORT INFORMATION
  Report Type: Spontaneous
  Country: US (occurrence: US)
  Receive Date: 20230414
  Receipt Date: 20230414
  Transmission Date: 20230722
  Serious: Yes (Death, Other)
  Sender: FDA-Public Use
  Company Number: US-CHEPLA-2023004678

PATIENT
  Sex: Female

DRUGS (1)
  1. CLONAZEPAM [Suspect]
     Active Substance: CLONAZEPAM
     Dosage: SINCE THE AGE OF FIFTEEN

REACTIONS (3)
  - Dependence [Unknown]
  - Suicide attempt [Unknown]
  - Completed suicide [Fatal]
